FAERS Safety Report 9342746 (Version 3)
Quarter: 2013Q3

REPORT INFORMATION
  Report Type: Spontaneous
  Country: US (occurrence: US)
  Receive Date: 20130611
  Receipt Date: 20130812
  Transmission Date: 20140515
  Serious: Yes (Hospitalization)
  Sender: FDA-Public Use
  Company Number: US-GILEAD-2013-0076779

PATIENT
  Age: 80 Year
  Sex: Male

DRUGS (10)
  1. LETAIRIS [Suspect]
     Indication: PULMONARY HYPERTENSION
     Dosage: 5 MG, QD
     Route: 048
     Dates: start: 20120807
  2. LETAIRIS [Suspect]
     Indication: CHRONIC OBSTRUCTIVE PULMONARY DISEASE
  3. LETAIRIS [Suspect]
     Indication: INTERSTITIAL LUNG DISEASE
  4. GLIPIZIDE [Concomitant]
     Dosage: 5 MG, BID
     Route: 048
  5. ASPIRIN [Concomitant]
     Dosage: 81 MG, QD
     Route: 048
  6. ACCUCHEK [Concomitant]
  7. INSULIN [Concomitant]
  8. DUONEB [Concomitant]
     Dosage: 2 PUFFS 4X DAY
  9. GLYBURIDE [Concomitant]
     Dosage: 5 MG, BID
  10. LASIX [Concomitant]
     Dosage: 20 MG, QD

REACTIONS (1)
  - Chronic obstructive pulmonary disease [Unknown]
